FAERS Safety Report 13953536 (Version 3)
Quarter: 2018Q1

REPORT INFORMATION
  Report Type: Spontaneous
  Country: US (occurrence: US)
  Receive Date: 20170911
  Receipt Date: 20180319
  Transmission Date: 20180508
  Serious: No
  Sender: FDA-Public Use
  Company Number: US-PFIZER INC-2017386960

PATIENT
  Age: 78 Year
  Sex: Female
  Weight: 49.89 kg

DRUGS (5)
  1. DOTERRA DEEP BLUE RUB [Concomitant]
     Indication: ARTHRITIS
     Dosage: UNK
  2. LYRICA [Suspect]
     Active Substance: PREGABALIN
     Indication: NEUROPATHY PERIPHERAL
     Dosage: 100 MG, 1X/DAY
     Route: 048
     Dates: start: 201708
  3. LYRICA [Interacting]
     Active Substance: PREGABALIN
     Dosage: 200 MG, 1X/DAY (2 CAPSULES ONCE A DAY)
     Route: 048
  4. LYRICA [Interacting]
     Active Substance: PREGABALIN
     Dosage: 100 MG, 3X/DAY
     Route: 048
  5. ZOLPIDEM TARTRATE. [Interacting]
     Active Substance: ZOLPIDEM TARTRATE
     Indication: SLEEP DISORDER
     Dosage: BREAKS IT IN 3^S, THINKS SHE IS TAKING 3MG, TAKES OCCASIONALLY IF REALLY NECESSARY

REACTIONS (12)
  - Drug ineffective [Not Recovered/Not Resolved]
  - Memory impairment [Not Recovered/Not Resolved]
  - Drug interaction [Unknown]
  - Sleep disorder [Not Recovered/Not Resolved]
  - Confusional state [Not Recovered/Not Resolved]
  - Fatigue [Not Recovered/Not Resolved]
  - Depression [Unknown]
  - Vision blurred [Unknown]
  - Extra dose administered [Unknown]
  - Feeling abnormal [Recovering/Resolving]
  - Anxiety [Unknown]
  - Flatulence [Not Recovered/Not Resolved]

NARRATIVE: CASE EVENT DATE: 2017
